FAERS Safety Report 13087985 (Version 2)
Quarter: 2017Q1

REPORT INFORMATION
  Report Type: Report from Study
  Country: CA (occurrence: CA)
  Receive Date: 20170105
  Receipt Date: 20170120
  Transmission Date: 20170428
  Serious: Yes (Other)
  Sender: FDA-Public Use
  Company Number: CA-APOPHARMA-2016AP016293

PATIENT
  Sex: Female
  Weight: 74 kg

DRUGS (1)
  1. FERRIPROX [Suspect]
     Active Substance: DEFERIPRONE
     Indication: SICKLE CELL ANAEMIA
     Dosage: 40 MG/KG, BID
     Route: 048
     Dates: start: 20160831

REACTIONS (2)
  - Renal impairment [Unknown]
  - Serum ferritin abnormal [Unknown]
